FAERS Safety Report 16440931 (Version 2)
Quarter: 2019Q3

REPORT INFORMATION
  Report Type: Spontaneous
  Country: DE (occurrence: DE)
  Receive Date: 20190617
  Receipt Date: 20190709
  Transmission Date: 20191004
  Serious: Yes (Other)
  Sender: FDA-Public Use
  Company Number: DE-PFIZER INC-2019250809

PATIENT
  Age: 68 Year
  Sex: Female

DRUGS (1)
  1. CHAMPIX [Suspect]
     Active Substance: VARENICLINE TARTRATE
     Indication: SMOKING CESSATION THERAPY
     Dosage: STARTER PACK
     Dates: start: 201904, end: 201905

REACTIONS (6)
  - Nausea [Recovered/Resolved]
  - Gastrointestinal candidiasis [Recovered/Resolved]
  - Abdominal distension [Recovered/Resolved]
  - Alopecia [Recovered/Resolved]
  - Conjunctivitis [Recovering/Resolving]
  - Flatulence [Recovering/Resolving]

NARRATIVE: CASE EVENT DATE: 2019
